FAERS Safety Report 7116957-4 (Version None)
Quarter: 2010Q4

REPORT INFORMATION
  Report Type: 
  Country: None (occurrence: None)
  Receive Date: 20101122
  Receipt Date: 20101110
  Transmission Date: 20110411
  Serious: Yes (Death, Hospitalization)
  Sender: FDA-Public Use
  Company Number: CA-ACTELION-A-US2010-39483

PATIENT

DRUGS (8)
  1. TRACLEER [Suspect]
     Indication: PULMONARY ARTERIAL HYPERTENSION
     Dosage: 31.25 MG, BID
     Route: 048
     Dates: start: 20091101, end: 20100825
  2. TRACLEER [Suspect]
     Dosage: 31.25 MG, QD
     Route: 048
     Dates: start: 20091001, end: 20091101
  3. SILDENAFIL CITRATE [Concomitant]
  4. LASIX [Concomitant]
  5. LACTULOSE [Concomitant]
  6. PREVACID [Concomitant]
  7. SEPTRA [Concomitant]
  8. MULTI-VITAMIN [Concomitant]

REACTIONS (4)
  - CARDIAC FAILURE [None]
  - LUNG INFECTION [None]
  - PULMONARY HYPERTENSION [None]
  - VIRAL INFECTION [None]
